FAERS Safety Report 11556103 (Version 1)
Quarter: 2015Q3

REPORT INFORMATION
  Report Type: Spontaneous
  Country: US (occurrence: US)
  Receive Date: 20150925
  Receipt Date: 20150925
  Transmission Date: 20151125
  Serious: No
  Sender: FDA-Public Use
  Company Number: CHPA2015US011260

PATIENT
  Age: 63 Year
  Sex: Female

DRUGS (3)
  1. VOLTAREN [Suspect]
     Active Substance: DICLOFENAC SODIUM
     Indication: SPINAL COLUMN STENOSIS
     Dosage: 4G, BID  SPREAD BETWEEN BACK, HIPS AND KNEES
     Route: 061
     Dates: start: 2015, end: 2015
  2. VOLTAREN [Suspect]
     Active Substance: DICLOFENAC SODIUM
     Indication: ARTHRITIS
     Dosage: 4 G, BID SPREAD BETWEEN NECK, BACK, HIPS AND KNEES
     Route: 061
     Dates: start: 201509, end: 20150922
  3. VOLTAREN [Suspect]
     Active Substance: DICLOFENAC SODIUM
     Dosage: 2 G, BID  SPREAD BETWEEN BACK, HIPS AND KNEES
     Route: 061
     Dates: start: 20150713, end: 2015

REACTIONS (5)
  - Product use issue [Unknown]
  - Concomitant disease progression [Not Recovered/Not Resolved]
  - Drug administered at inappropriate site [Unknown]
  - Inappropriate schedule of drug administration [Unknown]
  - Incorrect dose administered [Unknown]

NARRATIVE: CASE EVENT DATE: 2015
